FAERS Safety Report 10186929 (Version 1)
Quarter: 2014Q2

REPORT INFORMATION
  Report Type: Spontaneous
  Country: US (occurrence: US)
  Receive Date: 20140522
  Receipt Date: 20140522
  Transmission Date: 20141212
  Serious: No
  Sender: FDA-Public Use
  Company Number: US-BIOGENIDEC-2014BI045779

PATIENT
  Age: 41 Year
  Sex: Female

DRUGS (1)
  1. TYSABRI [Suspect]
     Indication: MULTIPLE SCLEROSIS
     Route: 042
     Dates: start: 20100930

REACTIONS (5)
  - Feeling hot [Recovered/Resolved]
  - Tremor [Recovered/Resolved]
  - Blood pressure increased [Recovered/Resolved]
  - Chest pain [Recovered/Resolved]
  - Infusion related reaction [Recovered/Resolved]
